FAERS Safety Report 5916952-4 (Version None)
Quarter: 2008Q4

REPORT INFORMATION
  Report Type: 
  Country: None (occurrence: None)
  Receive Date: 20081009
  Receipt Date: 20080925
  Transmission Date: 20090506
  Serious: Yes (Death, Other)
  Sender: FDA-Public Use
  Company Number: 2008S1017572

PATIENT
  Sex: Female

DRUGS (1)
  1. BYSTOLIC [Suspect]

REACTIONS (1)
  - DEATH [None]
